FAERS Safety Report 8850266 (Version 2)
Quarter: 2012Q4

REPORT INFORMATION
  Report Type: Report from Study
  Country: JP (occurrence: JP)
  Receive Date: 20121019
  Receipt Date: 20121101
  Transmission Date: 20130627
  Serious: Yes (Death, Other)
  Sender: FDA-Public Use
  Company Number: JP-ROCHE-1145409

PATIENT
  Sex: Male
  Weight: 62 kg

DRUGS (12)
  1. BEVACIZUMAB [Suspect]
     Indication: LUNG ADENOCARCINOMA METASTATIC
     Route: 041
     Dates: start: 20120816, end: 20120816
  2. ALIMTA [Suspect]
     Indication: LUNG ADENOCARCINOMA METASTATIC
     Route: 041
     Dates: start: 20120816, end: 20120816
  3. MEROPEN [Suspect]
     Indication: LUNG ADENOCARCINOMA METASTATIC
     Route: 041
     Dates: start: 20120824
  4. PARAPLATIN [Concomitant]
     Indication: LUNG ADENOCARCINOMA METASTATIC
     Route: 041
     Dates: start: 20120816, end: 20120816
  5. EVIPROSTAT [Concomitant]
     Indication: BENIGN PROSTATIC HYPERPLASIA
     Route: 048
     Dates: start: 2007, end: 20120824
  6. MAGMITT [Concomitant]
     Indication: CONSTIPATION
     Dosage: Single use
     Route: 048
     Dates: start: 20120807, end: 20120828
  7. NAIXAN [Concomitant]
     Indication: CANCER PAIN
     Route: 048
     Dates: start: 20120809, end: 20120824
  8. CYTOTEC [Concomitant]
     Indication: GASTRITIS PROPHYLAXIS
     Route: 048
     Dates: start: 20120809, end: 20120824
  9. FAMOTIDINE D [Concomitant]
     Indication: GASTRITIS PROPHYLAXIS
     Route: 048
     Dates: start: 20120809, end: 20120824
  10. TAMSULOSIN HYDROCHLORIDE [Concomitant]
     Indication: BENIGN PROSTATIC HYPERPLASIA
     Route: 048
     Dates: start: 20120810, end: 20120824
  11. BROCIN-CODEINE [Concomitant]
     Indication: COUGH
     Route: 048
     Dates: start: 20120810, end: 20120822
  12. MYSLEE [Concomitant]
     Indication: INSOMNIA
     Route: 048
     Dates: start: 20120815, end: 20120831

REACTIONS (7)
  - Interstitial lung disease [Fatal]
  - Cyanosis [Recovered/Resolved]
  - Cough [Unknown]
  - Disseminated intravascular coagulation [Unknown]
  - Aspartate aminotransferase increased [Unknown]
  - Alanine aminotransferase increased [Unknown]
  - Lung neoplasm malignant [Fatal]
